FAERS Safety Report 7764526-5 (Version None)
Quarter: 2011Q3

REPORT INFORMATION
  Report Type: 
  Country: None (occurrence: None)
  Receive Date: 20110921
  Receipt Date: 20110915
  Transmission Date: 20111222
  Serious: Yes (Death)
  Sender: FDA-Public Use
  Company Number: US-SANOFI-AVENTIS-2011SA061148

PATIENT
  Sex: Male

DRUGS (2)
  1. LANTUS [Suspect]
     Route: 065
  2. SOLOSTAR [Suspect]

REACTIONS (1)
  - DEATH [None]
